FAERS Safety Report 6817670-0 (Version None)
Quarter: 2010Q3

REPORT INFORMATION
  Report Type: 
  Country: None (occurrence: None)
  Receive Date: 20100706
  Receipt Date: 20100624
  Transmission Date: 20110219
  Serious: Yes (Death, Other)
  Sender: FDA-Public Use
  Company Number: US-PFIZER INC-2010071440

PATIENT
  Sex: Female

DRUGS (9)
  1. SUTENT [Suspect]
     Indication: THYROID CANCER
     Dosage: 50 MG, DAILY, 4 WEEKS ON, 2 WEEKS OFF
     Route: 048
     Dates: start: 20100208, end: 20100601
  2. NORVASC [Concomitant]
     Dosage: UNK
  3. SYNTHROID [Concomitant]
     Dosage: UNK
  4. CLONAZEPAM [Concomitant]
     Dosage: UNK
  5. LEXAPRO [Concomitant]
     Dosage: UNK
  6. TOPROL-XL [Concomitant]
     Dosage: UNK
  7. LOTENSIN [Concomitant]
     Dosage: UNK
  8. MAGNESIUM OXIDE [Concomitant]
  9. K-DUR [Concomitant]

REACTIONS (5)
  - FALL [None]
  - HAEMORRHAGE [None]
  - HAEMORRHAGE INTRACRANIAL [None]
  - HEAD INJURY [None]
  - SUBDURAL HAEMORRHAGE [None]
